FAERS Safety Report 16404926 (Version 1)
Quarter: 2019Q2

REPORT INFORMATION
  Report Type: Spontaneous
  Country: NL (occurrence: NL)
  Receive Date: 20190607
  Receipt Date: 20190607
  Transmission Date: 20190711
  Serious: Yes (Other)
  Sender: FDA-Public Use
  Company Number: NL-MYLANLABS-2019M1053148

PATIENT
  Age: 52 Year
  Sex: Female
  Weight: 57 kg

DRUGS (3)
  1. MICROGYNON                         /00022701/ [Suspect]
     Active Substance: ETHINYL ESTRADIOL\LEVONORGESTREL ACETATE
     Indication: MENSTRUAL CYCLE MANAGEMENT
     Dosage: 1 DOSAGE FORM
     Route: 048
     Dates: start: 201801, end: 201808
  2. CARBAMAZEPINE. [Suspect]
     Active Substance: CARBAMAZEPINE
     Indication: PRODUCT USED FOR UNKNOWN INDICATION
     Dosage: 200 MILLIGRAM, BID
  3. CLOMIPRAMINE [Concomitant]
     Active Substance: CLOMIPRAMINE
     Dosage: 1 DD 10 MG

REACTIONS (1)
  - Thrombosis [Recovered/Resolved]

NARRATIVE: CASE EVENT DATE: 201808
